FAERS Safety Report 4638958-8 (Version None)
Quarter: 2005Q2

REPORT INFORMATION
  Report Type: 
  Country: None (occurrence: None)
  Receive Date: 20050419
  Receipt Date: 20050407
  Transmission Date: 20051028
  Serious: Yes (Life-Threatening, Hospitalization)
  Sender: FDA-Public Use
  Company Number: ZA-GLAXOSMITHKLINE-B0378012A

PATIENT
  Age: 31 Year
  Sex: Male

DRUGS (1)
  1. ZYBAN [Suspect]
     Route: 065
     Dates: start: 20050403

REACTIONS (3)
  - CONVULSION [None]
  - OVERDOSE [None]
  - RESPIRATORY ARREST [None]
